FAERS Safety Report 13459468 (Version 1)
Quarter: 2017Q2

REPORT INFORMATION
  Report Type: Not Available
  Country: US (occurrence: US)
  Receive Date: 20170419
  Receipt Date: 20170419
  Transmission Date: 20170830
  Serious: No
  Sender: FDA-Public Use
  Company Number: US-PARAGONBIOTECK-2016-US-010591

PATIENT
  Age: 60 Year
  Sex: Male

DRUGS (1)
  1. PHENYLEPHRINE HYDROCHLORIDE OPHTHALMIC SOLUTION (NON-SPECIFIC) [Suspect]
     Active Substance: PHENYLEPHRINE HYDROCHLORIDE

REACTIONS (1)
  - Hypersensitivity [Unknown]
